FAERS Safety Report 11272520 (Version 1)
Quarter: 2015Q2

REPORT INFORMATION
  Report Type: Spontaneous
  Country: US (occurrence: None)
  Receive Date: 20150625
  Receipt Date: 20150625
  Transmission Date: 20150821
  Serious: No
  Sender: FDA-Public Use
  Company Number: A-US2015-112058

PATIENT
  Age: 55 Year
  Sex: Female

DRUGS (1)
  1. OPSUMIT [Suspect]
     Active Substance: MACITENTAN
     Indication: COR PULMONALE CHRONIC
     Route: 048

REACTIONS (6)
  - Abnormal sensation in eye [None]
  - Face oedema [None]
  - Incoherent [None]
  - Headache [None]
  - Feeling jittery [None]
  - Chest discomfort [None]
